FAERS Safety Report 24540094 (Version 1)
Quarter: 2024Q4

REPORT INFORMATION
  Report Type: Spontaneous
  Country: US (occurrence: None)
  Receive Date: 20241022
  Receipt Date: 20241022
  Transmission Date: 20250115
  Serious: Yes (Other)
  Sender: Public
  Company Number: None

PATIENT
  Age: 13 Year
  Sex: Male
  Weight: 39.6 kg

DRUGS (1)
  1. TRUXIMA [Suspect]
     Active Substance: RITUXIMAB-ABBS
     Indication: Nephrotic syndrome
     Dosage: OTHER FREQUENCY : 2 DOSES 1 WK APART;?
     Route: 041
     Dates: start: 20241022, end: 20241022

REACTIONS (6)
  - Dyspnoea [None]
  - Nausea [None]
  - Vomiting [None]
  - Abdominal pain upper [None]
  - Infusion related reaction [None]
  - Throat irritation [None]

NARRATIVE: CASE EVENT DATE: 20241022
